FAERS Safety Report 6917299-X (Version None)
Quarter: 2010Q3

REPORT INFORMATION
  Report Type: 
  Country: None (occurrence: None)
  Receive Date: 20100805
  Receipt Date: 20100721
  Transmission Date: 20110219
  Serious: Yes (Other)
  Sender: FDA-Public Use
  Company Number: 2010P1000326

PATIENT
  Sex: Female

DRUGS (3)
  1. SOLODYN [Suspect]
     Indication: ACNE
     Dosage: 90 MG;QD;PO
     Route: 048
     Dates: start: 20071101, end: 20100301
  2. DUAC (BENZOYL PEROXIDE UNKNOWN AND CLINDAMYCIN) [Concomitant]
  3. ORAL CONTRACEPTIVE [Concomitant]

REACTIONS (3)
  - ARTHRALGIA [None]
  - AUTOIMMUNE HEPATITIS [None]
  - CHOLECYSTECTOMY [None]
